FAERS Safety Report 9624806 (Version 2)
Quarter: 2013Q4

REPORT INFORMATION
  Report Type: Spontaneous
  Country: IN (occurrence: IN)
  Receive Date: 20131015
  Receipt Date: 20131015
  Transmission Date: 20140711
  Serious: Yes (Life-Threatening, Hospitalization, Other)
  Sender: FDA-Public Use
  Company Number: IN-ABBVIE-13P-078-1155497-00

PATIENT
  Age: 26 Year
  Sex: Female

DRUGS (11)
  1. VALPROIC ACID [Suspect]
     Indication: BIPOLAR DISORDER
     Dosage: 750 MG DAILY
  2. VALPROIC ACID [Suspect]
     Indication: OBSESSIVE-COMPULSIVE DISORDER
  3. LAMOTRIGINE [Suspect]
     Indication: PRODUCT USED FOR UNKNOWN INDICATION
     Dosage: 25 MG DAILY
  4. LAMOTRIGINE [Suspect]
  5. LAMOTRIGINE [Suspect]
  6. PROPRANOLOL HYDROCHLORIDE [Suspect]
     Indication: BIPOLAR DISORDER
     Dosage: 10 MG DAILY
  7. PROPRANOLOL HYDROCHLORIDE [Suspect]
     Indication: OBSESSIVE-COMPULSIVE DISORDER
  8. CLOMIPRAMINE [Suspect]
     Indication: BIPOLAR DISORDER
     Dosage: 10 MG DAILY
  9. CLOMIPRAMINE [Suspect]
     Indication: OBSESSIVE-COMPULSIVE DISORDER
  10. RISPERIDONE [Suspect]
     Indication: BIPOLAR DISORDER
  11. RISPERIDONE [Suspect]
     Indication: OBSESSIVE-COMPULSIVE DISORDER

REACTIONS (14)
  - Toxic epidermal necrolysis [Recovered/Resolved]
  - Drug interaction [Recovered/Resolved]
  - Rash [Recovered/Resolved]
  - Mouth ulceration [Recovered/Resolved]
  - Macule [Recovered/Resolved]
  - Papule [Recovered/Resolved]
  - Blister [Recovered/Resolved]
  - Skin lesion [Recovered/Resolved]
  - Skin erosion [Unknown]
  - Nikolsky^s sign [Unknown]
  - Conjunctival hyperaemia [Unknown]
  - Lip haemorrhage [Unknown]
  - Genital erosion [Unknown]
  - Off label use [Unknown]
